FAERS Safety Report 7128223-1 (Version None)
Quarter: 2010Q4

REPORT INFORMATION
  Report Type: 
  Country: None (occurrence: None)
  Receive Date: 20101130
  Receipt Date: 20101111
  Transmission Date: 20110411
  Serious: Yes (Life-Threatening, Hospitalization)
  Sender: FDA-Public Use
  Company Number: US-AMGEN LTD.-KDC440903

PATIENT

DRUGS (23)
  1. PANITUMUMAB [Suspect]
     Indication: OESOPHAGEAL CARCINOMA
     Dosage: 1.5 MG/KG, QWK
     Dates: start: 20100802
  2. CISPLATIN [Suspect]
     Dosage: 80 MG/M2, QMO
     Route: 042
     Dates: start: 20100802
  3. FLUOROURACIL [Suspect]
     Dosage: 1000 MG/M2, QMO
     Route: 042
     Dates: start: 20100802
  4. RADIATION THERAPY [Suspect]
     Dosage: UNK
     Dates: end: 20100914
  5. UNSPECIFIED INTRAVENOUS FLUIDS [Concomitant]
  6. MAGNESIUM [Concomitant]
  7. NEXIUM [Concomitant]
     Dosage: UNK UNK, BID
     Route: 048
  8. ASPIRIN [Concomitant]
     Dosage: 81 MG, QD
     Route: 048
  9. LIDOCAINE [Concomitant]
     Dosage: UNK UNK, PRN
  10. DIPHENHYDRAMINE HCL [Concomitant]
     Dosage: UNK UNK, PRN
  11. SIMETHICONE [Concomitant]
     Dosage: UNK UNK, PRN
  12. ATIVAN [Concomitant]
     Dosage: 1 MG, PRN
     Route: 048
  13. MEVACOR [Concomitant]
     Dosage: 40 MG, QD
     Route: 048
  14. MULTI-VITAMINS [Concomitant]
     Dosage: UNK UNK, QD
     Route: 048
  15. ZOFRAN [Concomitant]
     Dosage: 4 MG, QD
     Route: 048
  16. COMPAZINE [Concomitant]
     Dosage: 10 MG, PRN
     Route: 048
  17. EMEND                              /01627301/ [Concomitant]
     Route: 048
  18. TENORMIN [Concomitant]
     Dosage: 25 MG, UNK
  19. DECADRON [Concomitant]
     Dosage: 4 MG, UNK
  20. DURAGESIC-100 [Concomitant]
     Dosage: UNK
  21. VICODIN [Concomitant]
  22. OXYCODONE [Concomitant]
  23. DIOVAN [Concomitant]

REACTIONS (26)
  - ASTHENIA [None]
  - ATRIAL FIBRILLATION [None]
  - BLOOD ALKALINE PHOSPHATASE INCREASED [None]
  - COLITIS [None]
  - DEHYDRATION [None]
  - DIALYSIS [None]
  - DIARRHOEA [None]
  - DIVERTICULUM [None]
  - DIVERTICULUM INTESTINAL HAEMORRHAGIC [None]
  - DIZZINESS [None]
  - ENTEROCOLITIS INFECTIOUS [None]
  - FLUID RETENTION [None]
  - GASTROINTESTINAL HAEMORRHAGE [None]
  - HYPERGLYCAEMIA [None]
  - LEUKOPENIA [None]
  - MYOCARDIAL INFARCTION [None]
  - NAUSEA [None]
  - OEDEMA PERIPHERAL [None]
  - PANCYTOPENIA [None]
  - PLATELET COUNT DECREASED [None]
  - RADIATION OESOPHAGITIS [None]
  - RENAL FAILURE ACUTE [None]
  - RESPIRATORY FAILURE [None]
  - SEPSIS [None]
  - SKIN LACERATION [None]
  - VOMITING [None]
